FAERS Safety Report 9881113 (Version 2)
Quarter: 2014Q1

REPORT INFORMATION
  Report Type: Spontaneous
  Country: US (occurrence: US)
  Receive Date: 20140207
  Receipt Date: 20140320
  Transmission Date: 20141002
  Serious: No
  Sender: FDA-Public Use
  Company Number: US-PFIZER INC-2014029868

PATIENT
  Age: 39 Year
  Sex: Male

DRUGS (1)
  1. XELJANZ [Suspect]
     Indication: RHEUMATOID ARTHRITIS
     Dosage: 5 MG, TWICE A MONTH
     Route: 048
     Dates: start: 201309

REACTIONS (2)
  - Upper respiratory tract infection [Unknown]
  - Bronchitis [Unknown]
